FAERS Safety Report 12140155 (Version 2)
Quarter: 2016Q1

REPORT INFORMATION
  Report Type: Spontaneous
  Country: AU (occurrence: AU)
  Receive Date: 20160303
  Receipt Date: 20160328
  Transmission Date: 20160526
  Serious: No
  Sender: FDA-Public Use
  Company Number: AU-009507513-1603AUS001137

PATIENT
  Sex: Male

DRUGS (1)
  1. THERAPY UNSPECIFIED [Suspect]
     Active Substance: UNSPECIFIED INGREDIENT

REACTIONS (1)
  - Intercepted medication error [Unknown]
